FAERS Safety Report 4968624-0 (Version None)
Quarter: 2006Q2

REPORT INFORMATION
  Report Type: 
  Country: None (occurrence: None)
  Receive Date: 20060405
  Receipt Date: 20060323
  Transmission Date: 20061013
  Serious: Yes (Life-Threatening, Hospitalization, Other)
  Sender: FDA-Public Use
  Company Number: 2006035493

PATIENT
  Age: 44 Year
  Sex: Female

DRUGS (6)
  1. ZITHROMAX [Suspect]
     Indication: RESPIRATORY TRACT INFECTION
     Dosage: 500 MG (500 MG, 1 IN 1 D)
     Dates: start: 20051113, end: 20051115
  2. LESCOL [Concomitant]
  3. ISORDIL [Concomitant]
  4. WARFARIN SODIUM [Concomitant]
  5. COZAAR [Concomitant]
  6. CARVEDILOL [Concomitant]

REACTIONS (4)
  - CARDIAC ARREST [None]
  - ELECTROCARDIOGRAM QT PROLONGED [None]
  - TORSADE DE POINTES [None]
  - VENTRICULAR TACHYCARDIA [None]
